FAERS Safety Report 24950186 (Version 1)
Quarter: 2025Q1

REPORT INFORMATION
  Report Type: Spontaneous
  Country: DE (occurrence: DE)
  Receive Date: 20250210
  Receipt Date: 20250210
  Transmission Date: 20250408
  Serious: Yes (Disabling, Other)
  Sender: FRESENIUS KABI
  Company Number: None

PATIENT
  Age: 35 Year
  Sex: Female
  Weight: 106 kg

DRUGS (1)
  1. ROPIVACAINE HYDROCHLORIDE [Suspect]
     Active Substance: ROPIVACAINE HYDROCHLORIDE
     Indication: Epidural anaesthesia
     Route: 058
     Dates: start: 20230721, end: 20230721

REACTIONS (22)
  - Arachnoiditis [Recovered/Resolved with Sequelae]
  - Hypotonic urinary bladder [Recovered/Resolved with Sequelae]
  - Hydrocephalus [Recovered/Resolved with Sequelae]
  - Disability [Recovered/Resolved with Sequelae]
  - Neurogenic bladder [Recovered/Resolved with Sequelae]
  - Pain [Recovered/Resolved with Sequelae]
  - Anal incontinence [Recovered/Resolved with Sequelae]
  - Anal sphincter atony [Recovered/Resolved with Sequelae]
  - Spinal pain [Recovered/Resolved with Sequelae]
  - Hypoaesthesia [Recovered/Resolved with Sequelae]
  - Monoparesis [Recovered/Resolved with Sequelae]
  - Headache [Recovered/Resolved with Sequelae]
  - Neck pain [Recovered/Resolved with Sequelae]
  - Gait disturbance [Unknown]
  - Paraesthesia [Unknown]
  - Cyst [Unknown]
  - Intestinal atony [Unknown]
  - Muscle spasticity [Unknown]
  - Muscle twitching [Unknown]
  - Pain [Unknown]
  - Maternal exposure during pregnancy [Unknown]
  - Dizziness [Unknown]

NARRATIVE: CASE EVENT DATE: 20230721
